FAERS Safety Report 4882937-2 (Version None)
Quarter: 2006Q1

REPORT INFORMATION
  Report Type: 
  Country: None (occurrence: None)
  Receive Date: 20060112
  Receipt Date: 20061227
  Transmission Date: 20060701
  Serious: Yes (Hospitalization)
  Sender: FDA-Public Use
  Company Number: CIP05003004

PATIENT
  Age: 87 Year
  Sex: Female

DRUGS (3)
  1. RISEDRONATE SODIUM [Suspect]
     Indication: OSTEOPOROSIS
     Dosage: 2.5 MG DAILY, ORAL
     Route: 048
     Dates: start: 20050719, end: 20051207
  2. CALCITRIOL [Concomitant]
  3. ELCITONIN (ELCATONIN) [Concomitant]

REACTIONS (18)
  - BLOOD LACTATE DEHYDROGENASE INCREASED [None]
  - CARDIOMEGALY [None]
  - CREATINE PHOSPHOKINASE DECREASED [None]
  - DRUG INEFFECTIVE [None]
  - GLUCOSE URINE [None]
  - HAEMATOCRIT DECREASED [None]
  - HAEMOGLOBIN DECREASED [None]
  - LYMPHADENOPATHY [None]
  - LYMPHOCYTE COUNT DECREASED [None]
  - MONOCYTE COUNT INCREASED [None]
  - NEUTROPHIL COUNT INCREASED [None]
  - NON-HODGKIN'S LYMPHOMA [None]
  - OEDEMA [None]
  - OEDEMA PERIPHERAL [None]
  - PROTEIN URINE [None]
  - RED BLOOD CELL COUNT DECREASED [None]
  - TREATMENT NONCOMPLIANCE [None]
  - VENOUS OCCLUSION [None]
